FAERS Safety Report 15737211 (Version 1)
Quarter: 2018Q4

REPORT INFORMATION
  Report Type: Spontaneous
  Country: IT (occurrence: IT)
  Receive Date: 20181218
  Receipt Date: 20181218
  Transmission Date: 20190205
  Serious: Yes (Hospitalization)
  Sender: FDA-Public Use
  Company Number: IT-MYLANLABS-2018M1094036

PATIENT
  Age: 57 Year
  Sex: Male

DRUGS (5)
  1. ZOLPIDEM TARTRATE. [Concomitant]
     Active Substance: ZOLPIDEM TARTRATE
     Dosage: UNK
  2. ARIPIPRAZOLE. [Concomitant]
     Active Substance: ARIPIPRAZOLE
     Indication: PSYCHOTIC DISORDER
     Dosage: UNK
  3. TALOFEN [Concomitant]
     Active Substance: PROMAZINE HYDROCHLORIDE
     Indication: ANXIETY
     Dosage: UNK
  4. MIRTAZAPINE. [Concomitant]
     Active Substance: MIRTAZAPINE
     Indication: PSYCHOTIC DISORDER
     Dosage: UNK
  5. LORAZEPAM. [Suspect]
     Active Substance: LORAZEPAM
     Indication: ANXIETY
     Dosage: 10 MILLIGRAM, TOTAL

REACTIONS (4)
  - Dysphagia [Unknown]
  - Bradyphrenia [Unknown]
  - Muscle rigidity [Unknown]
  - Overdose [Unknown]

NARRATIVE: CASE EVENT DATE: 20180607
